FAERS Safety Report 18676754 (Version 1)
Quarter: 2020Q4

REPORT INFORMATION
  Report Type: Spontaneous
  Country: GR (occurrence: GR)
  Receive Date: 20201229
  Receipt Date: 20201229
  Transmission Date: 20210114
  Serious: Yes (Other)
  Sender: FDA-Public Use
  Company Number: GR-PFIZER INC-2020510861

PATIENT
  Age: 46 Year
  Sex: Male
  Weight: 100 kg

DRUGS (1)
  1. CARBOPLATIN. [Suspect]
     Active Substance: CARBOPLATIN
     Indication: LUNG NEOPLASM MALIGNANT
     Dosage: 650 MG
     Route: 042
     Dates: start: 20201014, end: 20201014

REACTIONS (3)
  - Abdominal pain [Recovered/Resolved]
  - Erythema [Recovered/Resolved]
  - Bronchospasm [Recovered/Resolved]

NARRATIVE: CASE EVENT DATE: 20201014
